FAERS Safety Report 6616304-8 (Version None)
Quarter: 2010Q1

REPORT INFORMATION
  Report Type: 
  Country: None (occurrence: None)
  Receive Date: 20100305
  Receipt Date: 20100215
  Transmission Date: 20100710
  Serious: Yes (Other)
  Sender: FDA-Public Use
  Company Number: US-SANOFI-AVENTIS-2010SA012116

PATIENT
  Age: 79 Year
  Sex: Female

DRUGS (4)
  1. LANTUS [Suspect]
     Dosage: DOSE:20 UNIT(S)
     Route: 058
     Dates: start: 20050701
  2. SOLOSTAR [Suspect]
     Dates: start: 20100201
  3. NOVOLIN R [Suspect]
     Dosage: CONSUMER STATES SHE WAS GIVEN NOVOLIN R INSTEAD OF NOVOLOG IN THE NH. IN NH FOR 3 WEEKS.
     Dates: start: 20090501
  4. NOVOLOG [Concomitant]
     Dosage: STARTED  NOVOLOG AFTER D/C FROM NH; USES IT ON SLIDING SCALE.
     Dates: start: 20090101

REACTIONS (6)
  - CEREBROVASCULAR ACCIDENT [None]
  - FEELING HOT [None]
  - HYPERHIDROSIS [None]
  - HYPOGLYCAEMIA [None]
  - MEMORY IMPAIRMENT [None]
  - SKIN ODOUR ABNORMAL [None]
